FAERS Safety Report 22182557 (Version 1)
Quarter: 2023Q2

REPORT INFORMATION
  Report Type: Spontaneous
  Country: FR (occurrence: FR)
  Receive Date: 20230406
  Receipt Date: 20230406
  Transmission Date: 20230721
  Serious: Yes (Other)
  Sender: FDA-Public Use
  Company Number: None

PATIENT
  Age: 88 Year
  Sex: Male
  Weight: 70 kg

DRUGS (3)
  1. RISPERDAL [Suspect]
     Active Substance: RISPERIDONE
     Indication: Agitation
     Route: 048
     Dates: start: 20210126, end: 20210204
  2. MIANSERIN HYDROCHLORIDE [Suspect]
     Active Substance: MIANSERIN HYDROCHLORIDE
     Indication: Depression
     Route: 048
     Dates: start: 20210127, end: 20210201
  3. OXYCODONE [Suspect]
     Active Substance: OXYCODONE
     Indication: Pain
     Route: 048
     Dates: start: 20210122, end: 20210201

REACTIONS (1)
  - Cutaneous vasculitis [Recovering/Resolving]

NARRATIVE: CASE EVENT DATE: 20210201
